FAERS Safety Report 14595149 (Version 1)
Quarter: 2018Q1

REPORT INFORMATION
  Report Type: Spontaneous
  Country: US (occurrence: US)
  Receive Date: 20180302
  Receipt Date: 20180302
  Transmission Date: 20180509
  Serious: Yes (Other)
  Sender: FDA-Public Use
  Company Number: US-AKORN PHARMACEUTICALS-2017AKN00260

PATIENT
  Age: 18 Year
  Sex: Male
  Weight: 83.9 kg

DRUGS (1)
  1. MYORISAN [Suspect]
     Active Substance: ISOTRETINOIN
     Indication: ACNE
     Dosage: 80 MG, 1X/DAY AT NIGHT
     Route: 048
     Dates: start: 201610, end: 20170228

REACTIONS (3)
  - Oesophageal ulcer [Not Recovered/Not Resolved]
  - Off label use [Recovered/Resolved]
  - Haematochezia [Not Recovered/Not Resolved]

NARRATIVE: CASE EVENT DATE: 20170227
